FAERS Safety Report 5900585-X (Version None)
Quarter: 2008Q3

REPORT INFORMATION
  Report Type: 
  Country: None (occurrence: None)
  Receive Date: 20080926
  Receipt Date: 20080916
  Transmission Date: 20090109
  Serious: Yes (Other)
  Sender: FDA-Public Use
  Company Number: CL-PFIZER INC-2008070025

PATIENT
  Age: 53 Year
  Sex: Female
  Weight: 65 kg

DRUGS (4)
  1. LYRICA [Suspect]
     Indication: NEUROPATHY PERIPHERAL
     Route: 048
     Dates: start: 20040101, end: 20071201
  2. LYRICA [Suspect]
     Indication: SPONDYLITIS
  3. LYRICA [Suspect]
     Indication: INTERVERTEBRAL DISC PROTRUSION
  4. ACETYLSALICYLIC ACID SRT [Concomitant]
     Indication: CEREBROVASCULAR ACCIDENT
     Dosage: DAILY DOSE:100MG
     Route: 048

REACTIONS (3)
  - CONSTIPATION [None]
  - PROCTALGIA [None]
  - RECTAL PROLAPSE [None]
